FAERS Safety Report 25098037 (Version 3)
Quarter: 2025Q4

REPORT INFORMATION
  Report Type: Spontaneous
  Country: CA (occurrence: CA)
  Receive Date: 20250320
  Receipt Date: 20251218
  Transmission Date: 20260118
  Serious: Yes (Death, Hospitalization)
  Sender: NOVO NORDISK
  Company Number: None

PATIENT
  Age: 68 Year
  Sex: Male

DRUGS (2)
  1. SEMAGLUTIDE [Suspect]
     Active Substance: SEMAGLUTIDE
     Indication: Product used for unknown indication
     Dosage: UNK
     Route: 058
  2. OFEV [Suspect]
     Active Substance: NINTEDANIB
     Indication: Pulmonary fibrosis
     Dosage: 150.0 MILLIGRAM 1 EVERY 12 HOURS, 100.0 MILLIGRAM 1 EVERY 12 HOURS

REACTIONS (15)
  - Death [Fatal]
  - Influenza [Fatal]
  - Peripheral swelling [Fatal]
  - Pulmonary oedema [Fatal]
  - Hypertension [Fatal]
  - Faeces soft [Fatal]
  - Blood pressure increased [Fatal]
  - Decreased appetite [Fatal]
  - Weight decreased [Fatal]
  - Abdominal pain upper [Fatal]
  - Dehydration [Fatal]
  - Diarrhoea [Fatal]
  - Fatigue [Fatal]
  - Nausea [Fatal]
  - Vomiting [Fatal]
